FAERS Safety Report 17818863 (Version 3)
Quarter: 2020Q2

REPORT INFORMATION
  Report Type: Spontaneous
  Country: US (occurrence: US)
  Receive Date: 20200522
  Receipt Date: 20200630
  Transmission Date: 20200714
  Serious: Yes (Hospitalization)
  Sender: FDA-Public Use
  Company Number: US-GILEAD-2020-0468216

PATIENT
  Age: 37 Year
  Sex: Male

DRUGS (1)
  1. TRUVADA [Suspect]
     Active Substance: EMTRICITABINE\TENOFOVIR DISOPROXIL FUMARATE
     Indication: PRODUCT USED FOR UNKNOWN INDICATION
     Dosage: UNK
     Route: 065
     Dates: start: 20180122

REACTIONS (5)
  - Intentional product use issue [Unknown]
  - Rash pruritic [Recovered/Resolved]
  - Headache [Unknown]
  - Nasal congestion [Unknown]
  - Eye irritation [Unknown]

NARRATIVE: CASE EVENT DATE: 20180122
